FAERS Safety Report 13305310 (Version 1)
Quarter: 2017Q1

REPORT INFORMATION
  Report Type: Spontaneous
  Country: JP (occurrence: JP)
  Receive Date: 20170308
  Receipt Date: 20170308
  Transmission Date: 20170428
  Serious: Yes (Hospitalization)
  Sender: FDA-Public Use
  Company Number: JP-SA-2017SA037930

PATIENT
  Sex: Male

DRUGS (2)
  1. ALIROCUMAB PREFILLED PEN [Concomitant]
     Active Substance: ALIROCUMAB
     Dates: start: 201609, end: 201702
  2. PRALUENT [Suspect]
     Active Substance: ALIROCUMAB
     Route: 058
     Dates: start: 201609, end: 201702

REACTIONS (6)
  - Dyspnoea [Unknown]
  - Amylase increased [Unknown]
  - Renal failure [Unknown]
  - Abdominal pain [Unknown]
  - Pancreatitis [Unknown]
  - Anuria [Unknown]

NARRATIVE: CASE EVENT DATE: 20170208
